FAERS Safety Report 6454850-0 (Version None)
Quarter: 2009Q4

REPORT INFORMATION
  Report Type: 
  Country: None (occurrence: None)
  Receive Date: 20091124
  Receipt Date: 20091117
  Transmission Date: 20100525
  Serious: Yes (Other)
  Sender: FDA-Public Use
  Company Number: JP-PFIZER INC-2009300028

PATIENT
  Age: 66 Year
  Sex: Male

DRUGS (2)
  1. SOLU-MEDROL [Suspect]
     Indication: IGA NEPHROPATHY
  2. PREDNISOLONE AND PREDNISOLONE STEAGLATE [Suspect]
     Dosage: UNK
     Dates: start: 20091118

REACTIONS (3)
  - JOINT ANKYLOSIS [None]
  - RESTLESSNESS [None]
  - SLEEP DISORDER [None]
